FAERS Safety Report 21533467 (Version 1)
Quarter: 2022Q4

REPORT INFORMATION
  Report Type: Spontaneous
  Country: FR (occurrence: FR)
  Receive Date: 20221101
  Receipt Date: 20221101
  Transmission Date: 20230113
  Serious: Yes (Death, Life-Threatening, Hospitalization, Other)
  Sender: FDA-Public Use
  Company Number: FR-Accord-222474

PATIENT
  Age: 51 Year
  Sex: Female

DRUGS (8)
  1. QUETIAPINE [Suspect]
     Active Substance: QUETIAPINE
  2. PREGABALIN [Interacting]
     Active Substance: PREGABALIN
  3. DIAZEPAM [Suspect]
     Active Substance: DIAZEPAM
  4. CODEINE [Interacting]
     Active Substance: CODEINE
  5. METHADONE [Interacting]
     Active Substance: METHADONE HYDROCHLORIDE
  6. LYRICA [Interacting]
     Active Substance: PREGABALIN
  7. MORPHINE [Suspect]
     Active Substance: MORPHINE
  8. COCAINE [Suspect]
     Active Substance: COCAINE

REACTIONS (9)
  - Drug abuse [Fatal]
  - Intentional product misuse [Fatal]
  - Asphyxia [Fatal]
  - Respiratory depression [Fatal]
  - Drug interaction [Fatal]
  - Overdose [Fatal]
  - Visceral congestion [Fatal]
  - Cardiopulmonary failure [Fatal]
  - Toxicity to various agents [Fatal]
